FAERS Safety Report 20539469 (Version 3)
Quarter: 2022Q3

REPORT INFORMATION
  Report Type: Spontaneous
  Country: JP (occurrence: JP)
  Receive Date: 20220302
  Receipt Date: 20220909
  Transmission Date: 20221027
  Serious: Yes (Other)
  Sender: FDA-Public Use
  Company Number: JP-MLMSERVICE-20220216-3379453-1

PATIENT
  Age: 76 Year
  Sex: Male

DRUGS (10)
  1. LANSOPRAZOLE [Suspect]
     Active Substance: LANSOPRAZOLE
     Indication: Oesophageal ulcer haemorrhage
     Dosage: 15 MILLIGRAM, QD, FOR THE FOLLOWING 1.5 MONTHS
     Route: 065
  2. LANSOPRAZOLE [Suspect]
     Active Substance: LANSOPRAZOLE
     Indication: Gastrooesophageal reflux disease
  3. VONOPRAZAN [Suspect]
     Active Substance: VONOPRAZAN
     Indication: Oesophageal ulcer haemorrhage
     Dosage: 10 MILLIGRAM, QD
     Route: 065
  4. VONOPRAZAN [Suspect]
     Active Substance: VONOPRAZAN
     Indication: Gastrooesophageal reflux disease
     Dosage: 20 MILLIGRAM, QD
     Route: 065
  5. VONOPRAZAN [Suspect]
     Active Substance: VONOPRAZAN
     Indication: Peptic ulcer
  6. ESOMEPRAZOLE [Suspect]
     Active Substance: ESOMEPRAZOLE
     Indication: Oesophageal ulcer haemorrhage
     Dosage: 20 MILLIGRAM, QD, FOR A MONTH
     Route: 065
  7. ESOMEPRAZOLE [Suspect]
     Active Substance: ESOMEPRAZOLE
     Indication: Gastrooesophageal reflux disease
  8. RABEPRAZOLE SODIUM [Suspect]
     Active Substance: RABEPRAZOLE SODIUM
     Indication: Oesophageal ulcer haemorrhage
     Dosage: 10 MILLIGRAM, QD
     Route: 065
  9. RABEPRAZOLE SODIUM [Suspect]
     Active Substance: RABEPRAZOLE SODIUM
     Indication: Gastrooesophageal reflux disease
  10. RABEPRAZOLE SODIUM [Suspect]
     Active Substance: RABEPRAZOLE SODIUM
     Indication: Peptic ulcer

REACTIONS (3)
  - Duodenal polyp [Recovered/Resolved]
  - Chronic gastritis [Recovered/Resolved]
  - Hypergastrinaemia [Recovered/Resolved]
